FAERS Safety Report 18629552 (Version 1)
Quarter: 2020Q4

REPORT INFORMATION
  Report Type: Spontaneous
  Country: JP (occurrence: JP)
  Receive Date: 20201217
  Receipt Date: 20201217
  Transmission Date: 20210114
  Serious: Yes (Other)
  Sender: FDA-Public Use
  Company Number: NVSC2020JP333032

PATIENT
  Age: 51 Year
  Sex: Female

DRUGS (7)
  1. DEXAMETHASONE. [Suspect]
     Active Substance: DEXAMETHASONE
     Dosage: TAPERED THE DOSE OVER 2 WEEKS
     Route: 065
  2. CYTARABINE. [Suspect]
     Active Substance: CYTARABINE
     Indication: HEPATOSPLENOMEGALY
  3. CISPLATIN. [Suspect]
     Active Substance: CISPLATIN
     Indication: HEPATOSPLENOMEGALY
  4. CISPLATIN. [Suspect]
     Active Substance: CISPLATIN
     Indication: LYMPHADENOPATHY
     Dosage: UNK
     Route: 065
  5. DEXAMETHASONE. [Suspect]
     Active Substance: DEXAMETHASONE
     Indication: LYMPHADENOPATHY
     Dosage: UNK
     Route: 065
  6. DEXAMETHASONE. [Suspect]
     Active Substance: DEXAMETHASONE
     Indication: HEPATOSPLENOMEGALY
     Dosage: 33 MG (FOR 4 DAYS)
     Route: 065
  7. CYTARABINE. [Suspect]
     Active Substance: CYTARABINE
     Indication: LYMPHADENOPATHY
     Dosage: UNK (HIGH DOSE)
     Route: 065

REACTIONS (4)
  - Disease progression [Unknown]
  - Ascites [Recovering/Resolving]
  - Hepatosplenomegaly [Recovering/Resolving]
  - Product use in unapproved indication [Unknown]
